FAERS Safety Report 9619839 (Version 2)
Quarter: 2013Q4

REPORT INFORMATION
  Report Type: Spontaneous
  Country: US (occurrence: US)
  Receive Date: 20131014
  Receipt Date: 20131014
  Transmission Date: 20140711
  Serious: Yes (Hospitalization, Other)
  Sender: FDA-Public Use
  Company Number: US-UCBSA-091968

PATIENT
  Age: 30 Year
  Sex: Male

DRUGS (6)
  1. VIMPAT [Suspect]
  2. VIMPAT [Suspect]
     Dosage: DOSE TAPERED
     Dates: start: 201303
  3. ONFI [Suspect]
     Indication: HEADACHE
     Dosage: STRENGTH 10 MG-TAPERING DOSE
     Route: 048
     Dates: start: 20130124, end: 2013
  4. ONFI [Suspect]
     Indication: HEADACHE
     Dosage: FULL DOSE
     Route: 048
     Dates: start: 201302, end: 2013
  5. FELBATOL [Concomitant]
  6. FIORICET [Concomitant]

REACTIONS (11)
  - Mania [Recovered/Resolved]
  - Abnormal behaviour [Recovered/Resolved]
  - Self-injurious ideation [Recovered/Resolved]
  - Grand mal convulsion [Recovered/Resolved]
  - Decreased appetite [Recovered/Resolved]
  - Insomnia [Recovered/Resolved]
  - Screaming [Recovered/Resolved]
  - Energy increased [Recovered/Resolved]
  - Personality change [Recovered/Resolved]
  - Dysarthria [Recovered/Resolved]
  - Dysphagia [Recovered/Resolved]
